FAERS Safety Report 7370547-7 (Version None)
Quarter: 2011Q1

REPORT INFORMATION
  Report Type: 
  Country: None (occurrence: None)
  Receive Date: 20110323
  Receipt Date: 20110228
  Transmission Date: 20110831
  Serious: No
  Sender: FDA-Public Use
  Company Number: US-BAYER-2011-020300

PATIENT
  Sex: Female
  Weight: 61 kg

DRUGS (5)
  1. PLAVIX [Concomitant]
     Dosage: 75 MG, UNK
  2. ALEVE (CAPLET) [Suspect]
     Indication: ARTHRITIS
     Dosage: DAILY
     Route: 048
     Dates: start: 20110101
  3. HISTERGAN [Concomitant]
  4. LIPITOR [Concomitant]
     Dosage: 25 MG, UNK
  5. NORVASK [Concomitant]

REACTIONS (1)
  - INSOMNIA [None]
